FAERS Safety Report 8682370 (Version 3)
Quarter: 2012Q4

REPORT INFORMATION
  Report Type: Report from Study
  Country: US (occurrence: US)
  Receive Date: 20120725
  Receipt Date: 20120924
  Transmission Date: 20130627
  Serious: Yes (Other)
  Sender: FDA-Public Use
  Company Number: US-ABBOTT-12P-163-0957200-00

PATIENT
  Age: 25 None
  Sex: Female
  Weight: 99.88 kg

DRUGS (27)
  1. LUPRON DEPOT [Suspect]
     Indication: ENDOMETRIOSIS
     Route: 030
     Dates: end: 201104
  2. LUPRON DEPOT [Suspect]
     Indication: ABDOMINAL PAIN
     Dates: start: 20110812
  3. LUPRON DEPOT 3.75 MG [Suspect]
     Indication: ENDOMETRIOSIS
     Route: 050
  4. PREMARIN [Concomitant]
     Indication: METRORRHAGIA
     Dates: start: 20070801, end: 20071116
  5. PREMARIN [Concomitant]
     Indication: HEADACHE
  6. AYGESTIN [Concomitant]
     Indication: PRODUCT USED FOR UNKNOWN INDICATION
     Route: 048
     Dates: start: 200707, end: 20070801
  7. COPAXONE [Concomitant]
     Indication: PRODUCT USED FOR UNKNOWN INDICATION
     Route: 050
  8. TYSABRI [Concomitant]
     Indication: PRODUCT USED FOR UNKNOWN INDICATION
     Route: 042
  9. IV STEROIDS [Concomitant]
     Indication: PRODUCT USED FOR UNKNOWN INDICATION
     Dosage: Recent round of STEROIDS
     Route: 042
  10. ZYRTEC [Concomitant]
     Indication: PRODUCT USED FOR UNKNOWN INDICATION
     Dosage: 1 pill daily
     Route: 048
  11. VITAMIN D [Concomitant]
     Indication: PRODUCT USED FOR UNKNOWN INDICATION
     Route: 048
  12. TOPAMAX [Concomitant]
     Indication: HEADACHE
     Route: 048
  13. TOPAMAX [Concomitant]
     Indication: OPTIC NEURITIS
  14. PRISTIQ [Concomitant]
     Indication: PRODUCT USED FOR UNKNOWN INDICATION
     Route: 048
  15. LUNESTA [Concomitant]
     Indication: PRODUCT USED FOR UNKNOWN INDICATION
     Dosage: 3 mg daily at bedtime
     Route: 048
  16. LYRICA [Concomitant]
     Indication: PRODUCT USED FOR UNKNOWN INDICATION
     Route: 048
  17. PREVACID [Concomitant]
     Indication: PRODUCT USED FOR UNKNOWN INDICATION
     Dosage: 15-30 mg, as needed
     Route: 048
  18. VYTORIN [Concomitant]
     Indication: PRODUCT USED FOR UNKNOWN INDICATION
     Dosage: 10/40 mg daily
     Route: 048
  19. DORYX [Concomitant]
     Indication: PRODUCT USED FOR UNKNOWN INDICATION
     Dosage: 150 mg daily
     Route: 048
  20. CELEBREX [Concomitant]
     Indication: PRODUCT USED FOR UNKNOWN INDICATION
     Dosage: 200 mg daily
     Route: 048
  21. XANAX [Concomitant]
     Indication: PRODUCT USED FOR UNKNOWN INDICATION
     Route: 048
  22. EFFEXOR [Concomitant]
  23. PREMPRO [Concomitant]
     Indication: PRODUCT USED FOR UNKNOWN INDICATION
     Dates: end: 20071012
  24. ESTRADIOL [Concomitant]
     Indication: HEADACHE
  25. ACTIVELLA [Concomitant]
     Indication: PRODUCT USED FOR UNKNOWN INDICATION
  26. HYDROCODONE/ACETAMINOPHEN [Concomitant]
     Indication: PRODUCT USED FOR UNKNOWN INDICATION
  27. CYCLOBENZAPINE [Concomitant]
     Indication: PRODUCT USED FOR UNKNOWN INDICATION

REACTIONS (18)
  - Multiple sclerosis [Not Recovered/Not Resolved]
  - Endometriosis [Unknown]
  - Adenomyosis [Unknown]
  - Adenoma benign [Unknown]
  - Joint injury [Unknown]
  - Meniscus injury [Unknown]
  - Fall [Unknown]
  - Gastric ulcer [Unknown]
  - Abdominal pain [Not Recovered/Not Resolved]
  - Headache [Unknown]
  - Arthralgia [Unknown]
  - Blindness unilateral [Unknown]
  - Liver function test abnormal [Recovered/Resolved]
  - Nausea [Unknown]
  - Vomiting [Unknown]
  - Pleurisy [Unknown]
  - Systemic lupus erythematosus [Unknown]
  - Blood cholesterol increased [Unknown]
